FAERS Safety Report 9017535 (Version 2)
Quarter: 2013Q1

REPORT INFORMATION
  Report Type: Spontaneous
  Country: US (occurrence: US)
  Receive Date: 20130117
  Receipt Date: 20130201
  Transmission Date: 20140127
  Serious: No
  Sender: FDA-Public Use
  Company Number: US-009507513-1301USA005855

PATIENT
  Age: 32 Year
  Sex: Female
  Weight: 76 kg

DRUGS (2)
  1. NEXPLANON [Suspect]
     Indication: CONTRACEPTION
     Dosage: 1 DF, UNK
     Route: 059
     Dates: start: 20121212, end: 20130111
  2. NEXPLANON [Suspect]
     Dosage: 1 DF, UNK
     Route: 059
     Dates: start: 20130111

REACTIONS (6)
  - Device kink [Unknown]
  - Instillation site discomfort [Unknown]
  - Device dislocation [Unknown]
  - Implant site induration [Unknown]
  - Implant site irritation [Unknown]
  - Implant site fibrosis [Unknown]
